FAERS Safety Report 5448613-2 (Version None)
Quarter: 2007Q3

REPORT INFORMATION
  Report Type: 
  Country: None (occurrence: None)
  Receive Date: 20070906
  Receipt Date: 20070906
  Transmission Date: 20080115
  Serious: Yes (Hospitalization)
  Sender: FDA-Public Use
  Company Number: None

PATIENT
  Sex: Female
  Weight: 86.63 kg

DRUGS (12)
  1. CISPLATIN [Suspect]
     Dosage: 94 MG
  2. DOXORUBICIN HYDROCHLORIDE [Suspect]
     Dosage: 85 MG
  3. ATENOLOL [Concomitant]
  4. COUMADIN [Concomitant]
  5. COZAAR [Concomitant]
  6. DILANTIN [Concomitant]
  7. GLIPIZIDE [Concomitant]
  8. KEPPRA [Concomitant]
  9. LOVASTATIN [Concomitant]
  10. METFORMIN HCL [Concomitant]
  11. OXYCODONE HCL [Concomitant]
  12. SENNA [Concomitant]

REACTIONS (3)
  - DEEP VEIN THROMBOSIS [None]
  - DISEASE PROGRESSION [None]
  - INTERNATIONAL NORMALISED RATIO INCREASED [None]
